FAERS Safety Report 19933549 (Version 1)
Quarter: 2021Q4

REPORT INFORMATION
  Report Type: Spontaneous
  Country: US (occurrence: US)
  Receive Date: 20211006
  Receipt Date: 20211006
  Transmission Date: 20220304
  Serious: Yes (Death)
  Sender: FDA-Public Use
  Company Number: None

PATIENT
  Age: 86 Year
  Sex: Male

DRUGS (11)
  1. OFEV [Suspect]
     Active Substance: NINTEDANIB
     Indication: Idiopathic pulmonary fibrosis
     Route: 048
     Dates: start: 20170804, end: 20210920
  2. trusopt opht drop [Concomitant]
  3. alphagan opt drop [Concomitant]
  4. ZOFRAN [Concomitant]
     Active Substance: ONDANSETRON HYDROCHLORIDE
  5. ctalopram [Concomitant]
  6. ALBUTEROL SULFATE [Concomitant]
     Active Substance: ALBUTEROL SULFATE
  7. PRADAXA [Concomitant]
     Active Substance: DABIGATRAN ETEXILATE MESYLATE
  8. FLOMAX [Concomitant]
     Active Substance: TAMSULOSIN HYDROCHLORIDE
  9. TYLENOL [Concomitant]
     Active Substance: ACETAMINOPHEN
  10. omeptazole [Concomitant]
  11. lidocaine top patch [Concomitant]

REACTIONS (3)
  - Diverticulitis [None]
  - Sepsis [None]
  - Organ failure [None]

NARRATIVE: CASE EVENT DATE: 20210912
